FAERS Safety Report 9378594 (Version 3)
Quarter: 2013Q4

REPORT INFORMATION
  Report Type: Report from Study
  Country: CA (occurrence: CA)
  Receive Date: 20130702
  Receipt Date: 20131008
  Transmission Date: 20140711
  Serious: Yes (Hospitalization, Other)
  Sender: FDA-Public Use
  Company Number: CA-ROCHE-1241042

PATIENT
  Age: 47 Year
  Sex: Male

DRUGS (1)
  1. LUCENTIS [Suspect]
     Indication: DIABETIC RETINAL OEDEMA
     Dosage: MOST RECENT DOSE ON 25/JUL/2013
     Route: 050

REACTIONS (4)
  - Blindness transient [Unknown]
  - Visual impairment [Unknown]
  - Malaise [Unknown]
  - Diabetic retinopathy [Recovered/Resolved]
